FAERS Safety Report 4731265-4 (Version None)
Quarter: 2005Q3

REPORT INFORMATION
  Report Type: 
  Country: None (occurrence: None)
  Receive Date: 20050728
  Receipt Date: 20050728
  Transmission Date: 20060218
  Serious: No
  Sender: FDA-Public Use
  Company Number: None

PATIENT
  Age: 52 Year
  Sex: Male

DRUGS (1)
  1. RITUXIMAB [Suspect]

REACTIONS (6)
  - FLUSHING [None]
  - HYPERHIDROSIS [None]
  - MULTIPLE SCLEROSIS [None]
  - PARAESTHESIA [None]
  - PRURITUS [None]
  - RHINORRHOEA [None]
